FAERS Safety Report 14979694 (Version 1)
Quarter: 2018Q2

REPORT INFORMATION
  Report Type: Report from Study
  Country: CA (occurrence: CA)
  Receive Date: 20180606
  Receipt Date: 20180606
  Transmission Date: 20180711
  Serious: Yes (Hospitalization, Other)
  Sender: FDA-Public Use
  Company Number: CA-JNJFOC-20180324753

PATIENT
  Sex: Male
  Weight: 42 kg

DRUGS (2)
  1. STELARA [Suspect]
     Active Substance: USTEKINUMAB
     Indication: CROHN^S DISEASE
     Dosage: STRENGTH = 90 MG
     Route: 058
     Dates: start: 20170705
  2. STELARA [Suspect]
     Active Substance: USTEKINUMAB
     Indication: CROHN^S DISEASE
     Route: 058

REACTIONS (7)
  - Drug level decreased [Unknown]
  - Rectal abscess [Recovering/Resolving]
  - Crohn^s disease [Not Recovered/Not Resolved]
  - Product use issue [Unknown]
  - Anal fistula [Recovering/Resolving]
  - Scar [Recovering/Resolving]
  - Off label use [Unknown]
